FAERS Safety Report 8828757 (Version 1)
Quarter: 2012Q4

REPORT INFORMATION
  Report Type: 
  Country: US (occurrence: US)
  Receive Date: 20121008
  Receipt Date: 20121008
  Transmission Date: 20130627
  Serious: Yes (Death)
  Sender: FDA-Public Use
  Company Number: US-ROCHE-704959

PATIENT
  Age: 51 Year
  Sex: Female
  Weight: 58.87 kg

DRUGS (5)
  1. RITUXAN [Suspect]
     Indication: SYSTEMIC LUPUS ERYTHEMATOSUS
     Dosage: 617 MCG, 1/WEEK
     Route: 042
     Dates: start: 20100115, end: 20100423
  2. RITUXAN [Suspect]
     Indication: ANAEMIA HAEMOLYTIC AUTOIMMUNE
     Route: 065
  3. RITUXAN [Suspect]
     Indication: LUPUS ENDOCARDITIS
  4. RITUXAN [Suspect]
     Indication: COLD TYPE HAEMOLYTIC ANAEMIA
  5. RITUXAN [Suspect]
     Indication: OFF LABEL USE

REACTIONS (3)
  - Disseminated intravascular coagulation [Fatal]
  - Acute respiratory failure [Fatal]
  - Renal failure [Fatal]
